FAERS Safety Report 16804678 (Version 3)
Quarter: 2019Q3

REPORT INFORMATION
  Report Type: Spontaneous
  Country: BE (occurrence: BE)
  Receive Date: 20190913
  Receipt Date: 20190920
  Transmission Date: 20191005
  Serious: Yes (Other)
  Sender: FDA-Public Use
  Company Number: BE-PFIZER INC-2019384876

PATIENT
  Age: 67 Year
  Sex: Female

DRUGS (2)
  1. CARBOPLATIN. [Suspect]
     Active Substance: CARBOPLATIN
     Indication: THYMOMA
     Dosage: UNK
  2. PACLITAXEL. [Suspect]
     Active Substance: PACLITAXEL
     Indication: THYMOMA
     Dosage: UNK

REACTIONS (3)
  - Second primary malignancy [Unknown]
  - Aplasia pure red cell [Unknown]
  - Myelodysplastic syndrome [Unknown]
